FAERS Safety Report 12921881 (Version 2)
Quarter: 2016Q4

REPORT INFORMATION
  Report Type: Spontaneous
  Country: US (occurrence: US)
  Receive Date: 20161108
  Receipt Date: 20161228
  Transmission Date: 20170207
  Serious: No
  Sender: FDA-Public Use
  Company Number: US-BIOGEN-2016BI00312353

PATIENT
  Sex: Female

DRUGS (2)
  1. AVONEX [Suspect]
     Active Substance: INTERFERON BETA-1A
     Indication: MULTIPLE SCLEROSIS
     Route: 030
  2. TYSABRI [Suspect]
     Active Substance: NATALIZUMAB
     Indication: MULTIPLE SCLEROSIS
     Dosage: INFUSED OVER 1 HOUR
     Route: 042
     Dates: start: 20070904, end: 20100826

REACTIONS (6)
  - Foot fracture [Unknown]
  - Clavicle fracture [Unknown]
  - Wrist fracture [Unknown]
  - Bone disorder [Unknown]
  - Bone density abnormal [Not Recovered/Not Resolved]
  - Ankle fracture [Unknown]
